FAERS Safety Report 6642638-7 (Version None)
Quarter: 2010Q1

REPORT INFORMATION
  Report Type: 
  Country: None (occurrence: None)
  Receive Date: 20100319
  Receipt Date: 20100310
  Transmission Date: 20100710
  Serious: Yes (Other)
  Sender: FDA-Public Use
  Company Number: GB-MERCK-1003USA01921

PATIENT
  Age: 67 Year
  Sex: Female

DRUGS (3)
  1. DECADRON [Suspect]
     Indication: PROPHYLAXIS OF NAUSEA AND VOMITING
     Route: 048
  2. FLUOROURACIL [Suspect]
     Indication: ANAL CANCER
     Route: 042
  3. MITOMYCIN [Suspect]
     Indication: ANAL CANCER
     Route: 042

REACTIONS (4)
  - CD4 LYMPHOCYTES DECREASED [None]
  - RESPIRATORY MONILIASIS [None]
  - SKIN EXFOLIATION [None]
  - STRIDOR [None]
